FAERS Safety Report 6724821-5 (Version None)
Quarter: 2010Q2

REPORT INFORMATION
  Report Type: 
  Country: None (occurrence: None)
  Receive Date: 20100513
  Receipt Date: 20100513
  Transmission Date: 20101027
  Serious: Yes (Hospitalization, Other)
  Sender: FDA-Public Use
  Company Number: None

PATIENT
  Sex: Female
  Weight: 50.3493 kg

DRUGS (19)
  1. INFERGEN [Suspect]
     Indication: HEPATITIS C
     Dosage: 15MCG ONCE A DAY SQ
     Route: 058
     Dates: start: 20100308, end: 20100411
  2. RIBAVIRIN [Suspect]
     Indication: HEPATITIS C
     Dosage: 2 CAPS TWICE A DAY PO
     Route: 048
     Dates: start: 20100308, end: 20100411
  3. MULTI-VITAMIN [Concomitant]
  4. ASPIRIN [Concomitant]
  5. MILK THISTLE [Concomitant]
  6. VERAMYST [Concomitant]
  7. PROMETHAZINE [Concomitant]
  8. CALCIUM CARBONATE [Concomitant]
  9. PREMARIN [Concomitant]
  10. LISINOPRIL [Concomitant]
  11. STARLIX [Concomitant]
  12. ZOLPIDEM [Concomitant]
  13. SOMA [Concomitant]
  14. VITAMIN C [Concomitant]
  15. ACETAMINOPHEN AND HYDROCODONE BITARTRATE [Concomitant]
  16. VITAMIN D3 [Concomitant]
  17. VERAPAMIL EXTENDED-RELEASE [Concomitant]
  18. MYLANTA [Concomitant]
  19. CLONIDINE [Concomitant]

REACTIONS (3)
  - AMMONIA INCREASED [None]
  - LIVER DISORDER [None]
  - PANCREATITIS ACUTE [None]
